FAERS Safety Report 15090753 (Version 1)
Quarter: 2018Q2

REPORT INFORMATION
  Report Type: Spontaneous
  Country: US (occurrence: US)
  Receive Date: 20180629
  Receipt Date: 20180629
  Transmission Date: 20180711
  Serious: No
  Sender: FDA-Public Use
  Company Number: US-ELI_LILLY_AND_COMPANY-US201806000733

PATIENT
  Sex: Male

DRUGS (10)
  1. LIOTHYRONINE [Suspect]
     Active Substance: LIOTHYRONINE
     Indication: THYROID HORMONES DECREASED
     Dosage: UNK, UNKNOWN
     Route: 065
  2. CIALIS [Suspect]
     Active Substance: TADALAFIL
     Indication: ERECTILE DYSFUNCTION
     Dosage: UNK, UNKNOWN
     Route: 048
     Dates: start: 2016
  3. CIALIS [Interacting]
     Active Substance: TADALAFIL
     Dosage: UNK, UNKNOWN
     Route: 048
     Dates: start: 2016
  4. CIALIS [Interacting]
     Active Substance: TADALAFIL
     Dosage: UNK, UNKNOWN
     Route: 048
  5. CLOMIPHENE                         /00061301/ [Interacting]
     Active Substance: CLOMIPHENE
     Indication: INFERTILITY MALE
     Dosage: UNK, UNKNOWN
     Route: 065
  6. L-ARGININE                         /00126101/ [Concomitant]
     Active Substance: ARGININE
     Indication: PRODUCT USED FOR UNKNOWN INDICATION
     Dosage: UNK, UNKNOWN
     Route: 065
  7. CIALIS [Interacting]
     Active Substance: TADALAFIL
     Dosage: UNK, UNKNOWN
     Route: 048
  8. VITAMIN B [Concomitant]
     Active Substance: VITAMIN B
     Indication: PRODUCT USED FOR UNKNOWN INDICATION
     Dosage: UNK, UNKNOWN
     Route: 065
  9. SYNTHROID [Suspect]
     Active Substance: LEVOTHYROXINE SODIUM
     Indication: THYROID HORMONES DECREASED
     Dosage: UNK, UNKNOWN
     Route: 065
  10. VITAMIN D3 [Concomitant]
     Active Substance: CHOLECALCIFEROL
     Indication: PRODUCT USED FOR UNKNOWN INDICATION
     Dosage: UNK, UNKNOWN
     Route: 065

REACTIONS (8)
  - Drug ineffective [Not Recovered/Not Resolved]
  - Hypoaesthesia [Recovered/Resolved]
  - Anxiety [Not Recovered/Not Resolved]
  - Wrong technique in product usage process [Unknown]
  - Drug interaction [Unknown]
  - Anxiety [Recovered/Resolved]
  - Tachycardia [Not Recovered/Not Resolved]
  - Thyroid hormones increased [Unknown]
